FAERS Safety Report 8483063-6 (Version None)
Quarter: 2012Q3

REPORT INFORMATION
  Report Type: 
  Country: None (occurrence: None)
  Receive Date: 20120702
  Receipt Date: 20120621
  Transmission Date: 20120928
  Serious: Yes (Death, Hospitalization)
  Sender: FDA-Public Use
  Company Number: AR-BAYER-2012-061636

PATIENT
  Age: 80 Year
  Sex: Female

DRUGS (4)
  1. IRON [Concomitant]
     Dosage: UNK
     Dates: start: 19910101
  2. CIPROFLOXACIN HYDROCHLORIDE [Concomitant]
     Indication: PYREXIA
  3. NAPROXEN SODIUM [Suspect]
     Indication: PYREXIA
  4. NAPROXEN SODIUM [Suspect]
     Indication: ABDOMINAL PAIN UPPER

REACTIONS (4)
  - GASTROINTESTINAL HAEMORRHAGE [None]
  - CARDIO-RESPIRATORY ARREST [None]
  - GASTRIC ULCER [None]
  - SHOCK HAEMORRHAGIC [None]
